FAERS Safety Report 8553566-4 (Version None)
Quarter: 2012Q3

REPORT INFORMATION
  Report Type: 
  Country: None (occurrence: None)
  Receive Date: 20120731
  Receipt Date: 20120726
  Transmission Date: 20120928
  Serious: No
  Sender: FDA-Public Use
  Company Number: US-PFIZER INC-2012181975

PATIENT
  Sex: Female
  Weight: 102 kg

DRUGS (1)
  1. INLYTA [Suspect]
     Indication: RENAL CANCER
     Dosage: 5 MG, 1X/DAY
     Route: 048
     Dates: start: 20120716, end: 20120722

REACTIONS (3)
  - MUSCLE FATIGUE [None]
  - MUSCLE SPASMS [None]
  - MYALGIA [None]
